FAERS Safety Report 21302058 (Version 1)
Quarter: 2022Q3

REPORT INFORMATION
  Report Type: Spontaneous
  Country: US (occurrence: US)
  Receive Date: 20220907
  Receipt Date: 20220907
  Transmission Date: 20221026
  Serious: No
  Sender: FDA-Public Use
  Company Number: US-TAKEDA-2022TUS060924

PATIENT
  Age: 17 Year
  Sex: Male

DRUGS (1)
  1. GAMMAGARD LIQUID [Suspect]
     Active Substance: HUMAN IMMUNOGLOBULIN G
     Indication: Trisomy 21
     Route: 065

REACTIONS (3)
  - Off label use [Unknown]
  - Insurance issue [Unknown]
  - No adverse event [Unknown]
